FAERS Safety Report 21058076 (Version 1)
Quarter: 2022Q3

REPORT INFORMATION
  Report Type: Spontaneous
  Country: GB (occurrence: GB)
  Receive Date: 20220708
  Receipt Date: 20220708
  Transmission Date: 20221026
  Serious: Yes (Other)
  Sender: FDA-Public Use
  Company Number: GB-REC-002753

PATIENT
  Age: 71 Year
  Sex: Female

DRUGS (7)
  1. DOXYCYCLINE [Suspect]
     Active Substance: DOXYCYCLINE
     Indication: Product used for unknown indication
     Dosage: 800 MILLIGRAM ( CAPSULES 100 MG? EIGHT CAPSULES OVER SEVEN DAYS)
     Route: 065
     Dates: start: 20220114
  2. BETAMETHASONE VALERATE [Suspect]
     Active Substance: BETAMETHASONE VALERATE
     Indication: Eczema
     Dosage: DROPS 0.1% W/V TWO TO THREE DROPS EVERY TWO TO THREE HOURS, REDUCING GRADUALLY, FOR A WEEK
     Route: 065
     Dates: start: 20211118
  3. BETAMETHASONE VALERATE [Suspect]
     Active Substance: BETAMETHASONE VALERATE
     Dosage: DROPS 0.1% W/V TWO DROPS TWO HOURLY REDUCING GRADUALLY, FOR A WEEK
     Route: 065
     Dates: start: 20210817
  4. BETAMETHASONE VALERATE [Suspect]
     Active Substance: BETAMETHASONE VALERATE
     Dosage: DROPS 0.1% W/V  TWO TO THREE DROPS EVERY TWO TO THREE HOURS, REDUCING GRADUALLY, FOR A WEEK; ;
     Route: 065
     Dates: start: 20211004
  5. BETAMETHASONE VALERATE [Suspect]
     Active Substance: BETAMETHASONE VALERATE
     Dosage: UNK, DROPS 0.1% W/V TWO TO THREE DROP THREE OF FOUR TIMES A DAY.  AFTER A DAY OR SO EYES A
     Route: 065
     Dates: start: 20220110
  6. CIPROFLOXACIN [Suspect]
     Active Substance: CIPROFLOXACIN
     Indication: Eczema
     Dosage: 2 DROP, BID, DROPS 3MG/ML / 1MG/ML  TWO DROPS TWICE A DAY FOR ELEVEN DAYS.
     Route: 065
     Dates: start: 20220214
  7. DEXAMETHASONE [Suspect]
     Active Substance: DEXAMETHASONE
     Indication: Eczema
     Dosage: 2 DROP, BID, DROPS 3MG/ML / 1MG/ML  TWO DROPS TWICE A DAY FOR ELEVEN DAYS.  AGAIN, SOME REDNESS
     Route: 065
     Dates: start: 20220214

REACTIONS (5)
  - Eye pain [Recovered/Resolved]
  - Ocular hyperaemia [Recovered/Resolved]
  - Foreign body sensation in eyes [Recovered/Resolved]
  - Eye disorder [Recovered/Resolved]
  - Hypersensitivity [Recovered/Resolved]
